FAERS Safety Report 18833405 (Version 2)
Quarter: 2021Q1

REPORT INFORMATION
  Report Type: Spontaneous
  Country: GB (occurrence: GB)
  Receive Date: 20210203
  Receipt Date: 20210203
  Transmission Date: 20210419
  Serious: Yes (Hospitalization)
  Sender: FDA-Public Use
  Company Number: GB-TILLOMEDPR-E2B_00002650

PATIENT
  Age: 13 Year
  Sex: Male
  Weight: 68.4 kg

DRUGS (5)
  1. LISINOPRIL ANHYDROUS [Concomitant]
     Active Substance: LISINOPRIL
  2. COLECALCIFEROL [Concomitant]
     Active Substance: CHOLECALCIFEROL
  3. ZOLEDRONIC ACID [Suspect]
     Active Substance: ZOLEDRONIC ACID
     Indication: LUMBAR VERTEBRAL FRACTURE
     Dosage: 1.65,MILLIGRAM
     Route: 042
     Dates: start: 20180207, end: 20180207
  4. PREDNISOLONE ACETATE. [Concomitant]
     Active Substance: PREDNISOLONE ACETATE
  5. DALIVIT [Concomitant]

REACTIONS (4)
  - Inflammation [Recovered/Resolved]
  - Malaise [Unknown]
  - Tachycardia [Recovered/Resolved]
  - Pyrexia [Recovered/Resolved]

NARRATIVE: CASE EVENT DATE: 20180207
